FAERS Safety Report 5754354-4 (Version None)
Quarter: 2008Q2

REPORT INFORMATION
  Report Type: 
  Country: None (occurrence: None)
  Receive Date: 20080530
  Receipt Date: 20080520
  Transmission Date: 20081010
  Serious: Yes (Other)
  Sender: FDA-Public Use
  Company Number: AU-PFIZER INC-2008018662

PATIENT
  Sex: Female
  Weight: 85 kg

DRUGS (12)
  1. CHANTIX [Suspect]
     Indication: SMOKING CESSATION THERAPY
     Route: 048
     Dates: start: 20080114, end: 20080217
  2. ZYPREXA [Concomitant]
  3. ENDEP [Concomitant]
     Route: 048
  4. ASPIRIN AND DIPYRIDAMOLE [Concomitant]
     Route: 048
  5. TOPAMAX [Concomitant]
  6. KEPPRA [Concomitant]
  7. RIVOTRIL [Concomitant]
  8. ARTANE [Concomitant]
     Route: 048
  9. DOPAMINERGIC AGENTS [Concomitant]
     Indication: RESTLESS LEGS SYNDROME
  10. ALL OTHER THERAPEUTIC PRODUCTS [Concomitant]
  11. DIABEX [Concomitant]
     Route: 048
  12. ASASANTIN - SLOW RELEASE [Concomitant]
     Route: 048

REACTIONS (4)
  - CONVULSION [None]
  - DELUSION [None]
  - HALLUCINATION [None]
  - PARANOIA [None]
